FAERS Safety Report 4316396-5 (Version None)
Quarter: 2004Q1

REPORT INFORMATION
  Report Type: 
  Country: None (occurrence: None)
  Receive Date: 20040311
  Receipt Date: 20040226
  Transmission Date: 20041129
  Serious: Yes (Other)
  Sender: FDA-Public Use
  Company Number: 2003116310

PATIENT
  Age: 59 Year
  Sex: Female
  Weight: 60 kg

DRUGS (4)
  1. NEURONTIN [Suspect]
     Indication: ILL-DEFINED DISORDER
     Dosage: 300 MG (THREE TIMES A DAY),ORAL
     Route: 048
     Dates: start: 20031001, end: 20031001
  2. CODEINE PHOSPHATE AND ACETAMINOPHEN [Concomitant]
  3. TRIAZOLAM [Concomitant]
  4. LOPERAMIDE HYDROCHLORIDE [Concomitant]

REACTIONS (5)
  - ASTHENIA [None]
  - CATATONIA [None]
  - DYSARTHRIA [None]
  - SOMNOLENCE [None]
  - TREMOR [None]
